FAERS Safety Report 5004928-3 (Version None)
Quarter: 2006Q1

REPORT INFORMATION
  Report Type: 
  Country: None (occurrence: None)
  Receive Date: 20060321
  Receipt Date: 20060123
  Transmission Date: 20060701
  Serious: No
  Sender: FDA-Public Use
  Company Number: YPA20050622

PATIENT
  Age: 89 Year
  Sex: Female
  Weight: 56.4 kg

DRUGS (8)
  1. VESICARE [Suspect]
     Indication: HYPERTONIC BLADDER
     Dosage: 10 MG, UID/QD, ORAL
     Route: 048
     Dates: start: 20050907, end: 20051205
  2. METFORMIN [Concomitant]
  3. BUPROPION (BUPROPION) [Concomitant]
  4. IRON PILL [Concomitant]
  5. FOLVIC [Concomitant]
  6. CARTIA /AUS/ [Concomitant]
  7. FOSAMAX [Concomitant]
  8. ZOLOFT [Concomitant]

REACTIONS (2)
  - CONSTIPATION [None]
  - DRY MOUTH [None]
